FAERS Safety Report 6939601-5 (Version None)
Quarter: 2010Q3

REPORT INFORMATION
  Report Type: 
  Country: None (occurrence: None)
  Receive Date: 20100820
  Receipt Date: 20100810
  Transmission Date: 20110219
  Serious: Yes (Other)
  Sender: FDA-Public Use
  Company Number: AU-1183006

PATIENT
  Sex: Female

DRUGS (3)
  1. ISOPTO CARPINE (PILOCARPINE HYDROCHLORIDE) 1% OPHTHALMIC SOLUTION LOT# [Suspect]
     Dosage: 1 GTT QID OD OPHTHALMIC
     Route: 047
     Dates: start: 20100809
  2. AZOPT [Concomitant]
  3. LUMIGAN [Concomitant]

REACTIONS (2)
  - DYSPNOEA [None]
  - HEART RATE INCREASED [None]
